FAERS Safety Report 9810159 (Version 2)
Quarter: 2015Q3

REPORT INFORMATION
  Report Type: Spontaneous
  Country: US (occurrence: US)
  Receive Date: 20140110
  Receipt Date: 20150718
  Transmission Date: 20151125
  Serious: Yes (Hospitalization, Other)
  Sender: FDA-Public Use
  Company Number: US-SANOFI-AVENTIS-2013SA079580

PATIENT
  Age: 72 Year
  Sex: Female

DRUGS (1)
  1. PLAVIX [Suspect]
     Active Substance: CLOPIDOGREL BISULFATE
     Indication: PROPHYLAXIS
     Route: 065
     Dates: start: 200204, end: 20060522

REACTIONS (5)
  - Aphasia [Unknown]
  - Cerebral haemorrhage [Unknown]
  - Dementia [Unknown]
  - Ulcer haemorrhage [Unknown]
  - Immobile [Unknown]

NARRATIVE: CASE EVENT DATE: 20060322
